FAERS Safety Report 12618569 (Version 1)
Quarter: 2016Q3

REPORT INFORMATION
  Report Type: Spontaneous
  Country: US (occurrence: None)
  Receive Date: 20160802
  Receipt Date: 20160802
  Transmission Date: 20161109
  Serious: No
  Sender: FDA-Public Use
  Company Number: None

PATIENT
  Age: 72 Year
  Sex: Female

DRUGS (1)
  1. COSENTYX [Suspect]
     Active Substance: SECUKINUMAB
     Indication: PSORIATIC ARTHROPATHY
     Route: 058
     Dates: start: 20160624

REACTIONS (5)
  - Headache [None]
  - Diarrhoea [None]
  - Nausea [None]
  - Insomnia [None]
  - Asthenia [None]

NARRATIVE: CASE EVENT DATE: 20160701
